FAERS Safety Report 9523471 (Version 4)
Quarter: 2019Q3

REPORT INFORMATION
  Report Type: Spontaneous
  Country: PL (occurrence: PL)
  Receive Date: 20130913
  Receipt Date: 20190730
  Transmission Date: 20191005
  Serious: Yes (Life-Threatening, Hospitalization)
  Sender: FDA-Public Use
  Company Number: PHHY2013PL097511

PATIENT
  Age: 33 Year
  Sex: Female

DRUGS (11)
  1. METOPROLOL. [Suspect]
     Active Substance: METOPROLOL
     Indication: BLOOD PRESSURE INCREASED
  2. HEPARIN [Suspect]
     Active Substance: HEPARIN SODIUM
     Indication: TACHYCARDIA
     Dosage: UNK
     Route: 041
  3. HEPARIN [Suspect]
     Active Substance: HEPARIN SODIUM
     Indication: BLOOD PRESSURE INCREASED
  4. FUROSEMIDE. [Suspect]
     Active Substance: FUROSEMIDE
     Indication: PULMONARY OEDEMA
  5. METOPROLOL. [Suspect]
     Active Substance: METOPROLOL
     Indication: TACHYCARDIA
     Dosage: 2.5 MG
     Route: 042
  6. MORPHINE [Suspect]
     Active Substance: MORPHINE
     Indication: DYSPNOEA
     Dosage: UNK
     Route: 065
  7. MORPHINE [Suspect]
     Active Substance: MORPHINE
     Indication: PULMONARY OEDEMA
  8. FUROSEMIDE. [Suspect]
     Active Substance: FUROSEMIDE
     Indication: DYSPNOEA
     Dosage: UNK
     Route: 065
  9. GLYCERYL TRINITRATE [Suspect]
     Active Substance: NITROGLYCERIN
     Indication: DYSPNOEA
     Dosage: UNK
     Route: 065
  10. METOPROLOL. [Suspect]
     Active Substance: METOPROLOL
     Indication: BLOOD PRESSURE INCREASED
  11. GLYCERYL TRINITRATE [Suspect]
     Active Substance: NITROGLYCERIN
     Indication: PULMONARY OEDEMA

REACTIONS (8)
  - Dyspnoea [Recovering/Resolving]
  - Blood pressure increased [Recovering/Resolving]
  - Cardiac arrest [Recovered/Resolved]
  - Therapeutic product effect incomplete [Unknown]
  - Pulmonary oedema [Recovering/Resolving]
  - Left ventricular failure [Recovered/Resolved]
  - Oxygen saturation decreased [Recovering/Resolving]
  - Left ventricular dysfunction [Recovering/Resolving]
